FAERS Safety Report 8018312-1 (Version None)
Quarter: 2011Q4

REPORT INFORMATION
  Report Type: 
  Country: None (occurrence: None)
  Receive Date: 20111227
  Receipt Date: 20111212
  Transmission Date: 20120403
  Serious: Yes (Hospitalization, Other)
  Sender: FDA-Public Use
  Company Number: CIP11000122

PATIENT
  Sex: Female

DRUGS (14)
  1. BYETTA [Concomitant]
  2. ASPIRIN [Concomitant]
  3. ACTONEL [Suspect]
     Dosage: ORAL
     Route: 048
     Dates: start: 20050801, end: 20060801
  4. ULTRAM [Concomitant]
  5. FOSAMAX [Suspect]
     Dosage: ORAL
     Route: 048
     Dates: start: 20040201, end: 20050801
  6. ADIPEX /00131701/ (PHENTERMINE) [Concomitant]
  7. PLAVIX [Concomitant]
  8. PROZAC [Concomitant]
  9. LANTUS [Concomitant]
  10. LASIX [Concomitant]
  11. BONIVA [Suspect]
     Dosage: 150 MG,  ONCE MONTHLY, ORAL
     Route: 048
     Dates: start: 20060829
  12. LORTAB [Concomitant]
  13. ZYRTEC [Concomitant]
  14. LYRICA [Concomitant]

REACTIONS (10)
  - FRACTURE NONUNION [None]
  - FEMUR FRACTURE [None]
  - DEVICE BREAKAGE [None]
  - FALL [None]
  - STRESS FRACTURE [None]
  - PERIPROSTHETIC FRACTURE [None]
  - LOW TURNOVER OSTEOPATHY [None]
  - BONE DISORDER [None]
  - PAIN IN EXTREMITY [None]
  - COMMINUTED FRACTURE [None]
